FAERS Safety Report 4973417-4 (Version None)
Quarter: 2006Q2

REPORT INFORMATION
  Report Type: 
  Country: None (occurrence: None)
  Receive Date: 20060413
  Receipt Date: 20060413
  Transmission Date: 20061013
  Serious: Yes (Hospitalization)
  Sender: FDA-Public Use
  Company Number: None

PATIENT
  Age: 54 Year
  Sex: Female
  Weight: 81.6475 kg

DRUGS (7)
  1. OMNIPAQUE 300 [Suspect]
     Indication: SCAN WITH CONTRAST
     Dosage: OTO    IV
     Route: 042
     Dates: start: 20060121
  2. PRILOSEC [Concomitant]
  3. ESTRATEST H.S. [Concomitant]
  4. DETROL LA [Concomitant]
  5. CELEXA [Concomitant]
  6. ASPIRIN [Concomitant]
  7. NITROGLYCERIN [Concomitant]

REACTIONS (4)
  - CONTRAST MEDIA REACTION [None]
  - HYPOTENSION [None]
  - RASH [None]
  - SWOLLEN TONGUE [None]
